FAERS Safety Report 9013669 (Version 1)
Quarter: 2013Q1

REPORT INFORMATION
  Report Type: Spontaneous
  Country: BR (occurrence: BR)
  Receive Date: 20130115
  Receipt Date: 20130115
  Transmission Date: 20140127
  Serious: Yes (Other)
  Sender: FDA-Public Use
  Company Number: PHHY2013BR002524

PATIENT
  Age: 30 Year
  Sex: Female

DRUGS (1)
  1. AFINITOR [Suspect]
     Indication: HODGKIN^S DISEASE
     Dosage: 10 MG

REACTIONS (5)
  - Bursitis [Unknown]
  - Inflammation [Unknown]
  - Necrosis [Unknown]
  - Oedema peripheral [Unknown]
  - Pain in extremity [Unknown]
